FAERS Safety Report 21928849 (Version 1)
Quarter: 2023Q1

REPORT INFORMATION
  Report Type: Report from Study
  Country: IT (occurrence: IT)
  Receive Date: 20230131
  Receipt Date: 20230131
  Transmission Date: 20230418
  Serious: Yes (Hospitalization, Other)
  Sender: FDA-Public Use
  Company Number: None

PATIENT
  Age: 69 Year
  Sex: Female

DRUGS (2)
  1. ALPRAZOLAM [Suspect]
     Active Substance: ALPRAZOLAM
     Indication: Product used for unknown indication
     Dosage: 2 EMPTY BOTTLES
     Route: 065
     Dates: start: 20220323, end: 20220323
  2. TAVOR (LORAZEPAM) [Suspect]
     Active Substance: LORAZEPAM
     Indication: Product used for unknown indication
     Dosage: 1 PACK
     Route: 065

REACTIONS (3)
  - Drug abuse [Unknown]
  - Suicide attempt [Recovered/Resolved]
  - Sopor [Recovering/Resolving]

NARRATIVE: CASE EVENT DATE: 20220323
